FAERS Safety Report 6604604-7 (Version None)
Quarter: 2010Q1

REPORT INFORMATION
  Report Type: 
  Country: None (occurrence: None)
  Receive Date: 20100226
  Receipt Date: 20091218
  Transmission Date: 20100710
  Serious: No
  Sender: FDA-Public Use
  Company Number: A0835939A

PATIENT
  Sex: Female

DRUGS (4)
  1. LAMICTAL CD [Suspect]
     Indication: MENTAL DISORDER
     Dosage: 100MG TWICE PER DAY
     Route: 048
     Dates: start: 20090801
  2. CYMBALTA [Concomitant]
  3. RITALIN [Concomitant]
  4. LYRICA [Concomitant]

REACTIONS (2)
  - ACNE [None]
  - PRURITUS [None]
